FAERS Safety Report 16669534 (Version 1)
Quarter: 2019Q3

REPORT INFORMATION
  Report Type: Spontaneous
  Country: GB (occurrence: GB)
  Receive Date: 20190805
  Receipt Date: 20190805
  Transmission Date: 20191004
  Serious: Yes (Life-Threatening, Hospitalization, Other)
  Sender: FDA-Public Use
  Company Number: GB-MYLANLABS-2019M1005033

PATIENT
  Age: 34 Year
  Sex: Female
  Weight: 140 kg

DRUGS (13)
  1. OMEPRAZOLE. [Concomitant]
     Active Substance: OMEPRAZOLE
     Indication: PRODUCT USED FOR UNKNOWN INDICATION
     Dosage: UNK
     Route: 065
  2. CLOZAPINE. [Suspect]
     Active Substance: CLOZAPINE
     Dosage: 550 MILLIGRAM, QD
     Route: 048
     Dates: start: 20181128, end: 20181228
  3. LINEZOLID. [Suspect]
     Active Substance: LINEZOLID
     Dosage: 600 MILLIGRAM, QD
     Route: 042
     Dates: start: 20181224, end: 20181227
  4. CLOZAPINE. [Suspect]
     Active Substance: CLOZAPINE
     Dosage: 550 MILLIGRAM, QD
     Route: 048
     Dates: start: 20181210, end: 2018
  5. TINZAPARIN [Concomitant]
     Active Substance: TINZAPARIN
     Indication: PRODUCT USED FOR UNKNOWN INDICATION
     Dosage: UNK
     Route: 065
  6. CLOZAPINE. [Suspect]
     Active Substance: CLOZAPINE
     Indication: SCHIZOPHRENIA
     Dosage: 300 MILLIGRAM, QD
     Route: 048
     Dates: start: 20181128, end: 20181228
  7. CITALOPRAM [Concomitant]
     Active Substance: CITALOPRAM HYDROBROMIDE
     Indication: PRODUCT USED FOR UNKNOWN INDICATION
     Dosage: UNK
     Route: 065
  8. SPIRONOLACTONE. [Concomitant]
     Active Substance: SPIRONOLACTONE
     Indication: PRODUCT USED FOR UNKNOWN INDICATION
     Dosage: UNK
     Route: 065
  9. METFORMIN [Concomitant]
     Active Substance: METFORMIN HYDROCHLORIDE
     Indication: PRODUCT USED FOR UNKNOWN INDICATION
     Dosage: UNK
     Route: 065
  10. FERROUS FUMARATE [Concomitant]
     Active Substance: FERROUS FUMARATE
     Indication: PRODUCT USED FOR UNKNOWN INDICATION
     Dosage: UNK
     Route: 065
  11. AMISULPRIDE [Concomitant]
     Active Substance: AMISULPRIDE
     Indication: PRODUCT USED FOR UNKNOWN INDICATION
     Dosage: UNK
     Route: 065
  12. LINEZOLID. [Suspect]
     Active Substance: LINEZOLID
     Indication: SEPSIS
     Dosage: 1200 MILLIGRAM, QD
     Route: 042
     Dates: start: 20181224, end: 20181227
  13. CLOZAPINE. [Suspect]
     Active Substance: CLOZAPINE
     Indication: SCHIZOPHRENIA
     Dosage: 550 MILLIGRAM, QD
     Route: 048
     Dates: start: 20081218, end: 2018

REACTIONS (3)
  - Sepsis [Unknown]
  - Neutropenia [Recovered/Resolved]
  - Leukopenia [Recovered/Resolved]

NARRATIVE: CASE EVENT DATE: 201812
